FAERS Safety Report 5299857-4 (Version None)
Quarter: 2007Q2

REPORT INFORMATION
  Report Type: 
  Country: None (occurrence: None)
  Receive Date: 20070417
  Receipt Date: 20070405
  Transmission Date: 20071010
  Serious: Yes (Hospitalization)
  Sender: FDA-Public Use
  Company Number: FR-PFIZER INC-2007028315

PATIENT
  Age: 60 Year
  Sex: Male

DRUGS (1)
  1. SUTENT [Suspect]
     Indication: METASTATIC RENAL CELL CARCINOMA
     Route: 048
     Dates: start: 20060101, end: 20070223

REACTIONS (4)
  - HEPATITIS [None]
  - HEPATITIS CHOLESTATIC [None]
  - JAUNDICE [None]
  - JAUNDICE HEPATOCELLULAR [None]
